FAERS Safety Report 22261108 (Version 1)
Quarter: 2023Q2

REPORT INFORMATION
  Report Type: Spontaneous
  Country: JP (occurrence: JP)
  Receive Date: 20230427
  Receipt Date: 20230427
  Transmission Date: 20230722
  Serious: Yes (Other)
  Sender: FDA-Public Use
  Company Number: JP-JAZZ PHARMACEUTICALS-2023-JP-009452

PATIENT

DRUGS (1)
  1. DEFITELIO [Suspect]
     Active Substance: DEFIBROTIDE SODIUM
     Indication: Product used for unknown indication
     Dosage: UNK
     Route: 042
     Dates: start: 20230410, end: 202304

REACTIONS (2)
  - Intestinal haemorrhage [Unknown]
  - Melaena [Unknown]

NARRATIVE: CASE EVENT DATE: 20230401
